FAERS Safety Report 4738423-3 (Version None)
Quarter: 2005Q3

REPORT INFORMATION
  Report Type: 
  Country: None (occurrence: None)
  Receive Date: 20050728
  Receipt Date: 20050418
  Transmission Date: 20060218
  Serious: No
  Sender: FDA-Public Use
  Company Number: 200513293US

PATIENT

DRUGS (1)
  1. KETEK [Suspect]
     Dosage: 800 MG/DAY

REACTIONS (1)
  - GASTROINTESTINAL DISORDER [None]
